FAERS Safety Report 7033492-2 (Version None)
Quarter: 2010Q4

REPORT INFORMATION
  Report Type: 
  Country: None (occurrence: None)
  Receive Date: 20101007
  Receipt Date: 20100922
  Transmission Date: 20110411
  Serious: Yes (Hospitalization)
  Sender: FDA-Public Use
  Company Number: PHHY2010BR63124

PATIENT
  Sex: Female

DRUGS (3)
  1. DIOVAN [Suspect]
     Dosage: 80 MG
     Route: 048
  2. FORASEQ [Suspect]
     Dosage: 12/400 MG
     Route: 048
  3. SERETIDE [Concomitant]

REACTIONS (1)
  - PULMONARY OEDEMA [None]
